FAERS Safety Report 16044929 (Version 1)
Quarter: 2019Q1

REPORT INFORMATION
  Report Type: Spontaneous
  Country: NO (occurrence: NO)
  Receive Date: 20190307
  Receipt Date: 20190307
  Transmission Date: 20190418
  Serious: Yes (Hospitalization)
  Sender: FDA-Public Use
  Company Number: NO-ACCORD-110587

PATIENT
  Age: 71 Year
  Sex: Female

DRUGS (9)
  1. NYCOPLUS MULTI [Concomitant]
     Route: 048
  2. BRILIQUE [Concomitant]
     Active Substance: TICAGRELOR
     Indication: ACUTE MYOCARDIAL INFARCTION
     Dosage: STRENGTH: 90 MG
     Route: 048
     Dates: start: 201806, end: 20180825
  3. BEROCCA [Concomitant]
     Active Substance: VITAMINS
     Route: 048
  4. EPLERENON ACCORD [Suspect]
     Active Substance: EPLERENONE
     Indication: CARDIAC FAILURE
     Dosage: STRENGTH: 25 MG
     Route: 048
     Dates: start: 201806
  5. TRIATEC (RAMIPRIL) [Suspect]
     Active Substance: RAMIPRIL
     Indication: CARDIAC FAILURE
     Dosage: STRENGTH: 2.5 MG
     Route: 048
     Dates: start: 201806, end: 20180825
  6. BURINEX [Suspect]
     Active Substance: BUMETANIDE
     Indication: CARDIAC FAILURE
     Dosage: STRENGTH: 1 MG
     Route: 048
     Dates: start: 201806
  7. LIPITOR [Concomitant]
     Active Substance: ATORVASTATIN CALCIUM
     Indication: ACUTE MYOCARDIAL INFARCTION
     Dosage: STRENGTH: 80 MG
     Route: 048
     Dates: start: 201806, end: 20180825
  8. ALBYL-E [Concomitant]
     Active Substance: ASPIRIN\MAGNESIUM OXIDE
     Indication: ACUTE MYOCARDIAL INFARCTION
     Dosage: STRENGTH: 75 MG
     Route: 048
     Dates: start: 201806, end: 20180825
  9. BISOPROLOL [Concomitant]
     Active Substance: BISOPROLOL
     Indication: CARDIAC FAILURE
     Route: 048
     Dates: start: 201806

REACTIONS (1)
  - Acute kidney injury [Recovering/Resolving]

NARRATIVE: CASE EVENT DATE: 20180825
